FAERS Safety Report 18542005 (Version 1)
Quarter: 2020Q4

REPORT INFORMATION
  Report Type: Spontaneous
  Country: AU (occurrence: AU)
  Receive Date: 20201125
  Receipt Date: 20201125
  Transmission Date: 20210114
  Serious: Yes (Other)
  Sender: FDA-Public Use
  Company Number: AU-UCBSA-2020042565

PATIENT
  Sex: Male

DRUGS (5)
  1. TEGRETOL [Suspect]
     Active Substance: CARBAMAZEPINE
     Indication: PRODUCT USED FOR UNKNOWN INDICATION
     Dosage: ACCIDENTLY TOOK TWICE IN NIGHT ; TOTAL DOSES: 400MG
  2. PREGABALIN. [Suspect]
     Active Substance: PREGABALIN
     Indication: PRODUCT USED FOR UNKNOWN INDICATION
     Dosage: ACCIDENTLY TOOK TWICE IN NIGHT ; TOTAL DOSES: 1.2G
  3. KEPPRA [Suspect]
     Active Substance: LEVETIRACETAM
     Indication: PRODUCT USED FOR UNKNOWN INDICATION
     Dosage: ACCIDENTLY TOOK TWICE IN NIGHT; TOTAL DOSES: 2000MG
  4. CLONAZEPAM. [Suspect]
     Active Substance: CLONAZEPAM
     Indication: PRODUCT USED FOR UNKNOWN INDICATION
     Dosage: ACCIDENTLY TOOK TWICE IN NIGHT; TOTAL DOSES: 8MG
  5. METOPROLOL TARTRATE. [Suspect]
     Active Substance: METOPROLOL TARTRATE
     Indication: PRODUCT USED FOR UNKNOWN INDICATION
     Dosage: ACCIDENTLY TOOK TWICE IN NIGHT ; TOTAL DOSES: 200MG METOPROLOL

REACTIONS (3)
  - Dyspnoea [Unknown]
  - Accidental overdose [Unknown]
  - Chest pain [Unknown]
